FAERS Safety Report 5980271-0 (Version None)
Quarter: 2008Q4

REPORT INFORMATION
  Report Type: 
  Country: None (occurrence: None)
  Receive Date: 20081205
  Receipt Date: 20081127
  Transmission Date: 20090506
  Serious: Yes (Other)
  Sender: FDA-Public Use
  Company Number: PHHY2008JP30042

PATIENT

DRUGS (1)
  1. VOLTAREN [Suspect]
     Indication: ECZEMA
     Route: 054

REACTIONS (1)
  - BLOOD PRESSURE DECREASED [None]
